FAERS Safety Report 18791653 (Version 1)
Quarter: 2021Q1

REPORT INFORMATION
  Report Type: Spontaneous
  Country: US (occurrence: US)
  Receive Date: 20210126
  Receipt Date: 20210126
  Transmission Date: 20210419
  Serious: No
  Sender: FDA-Public Use
  Company Number: US-PERRIGO-20US008932

PATIENT
  Age: 9 Year
  Sex: Female
  Weight: 45.35 kg

DRUGS (2)
  1. PERMETHRIN. [Suspect]
     Active Substance: PERMETHRIN
     Dosage: 1 APPLICATION, SINGLE
     Route: 061
     Dates: start: 20200618, end: 20200618
  2. PERMETHRIN. [Suspect]
     Active Substance: PERMETHRIN
     Indication: LICE INFESTATION
     Dosage: 1 APPLICATION, SINGLE
     Route: 061
     Dates: start: 20200616, end: 20200616

REACTIONS (1)
  - Inappropriate schedule of product administration [Recovered/Resolved]

NARRATIVE: CASE EVENT DATE: 20200616
